FAERS Safety Report 6210971-9 (Version None)
Quarter: 2009Q2

REPORT INFORMATION
  Report Type: 
  Country: None (occurrence: None)
  Receive Date: 20090528
  Receipt Date: 20090528
  Transmission Date: 20091009
  Serious: Yes (Other)
  Sender: FDA-Public Use
  Company Number: None

PATIENT
  Age: 42 Year
  Sex: Male
  Weight: 74.8435 kg

DRUGS (2)
  1. LAMOTRIGINE [Suspect]
     Indication: BRAIN INJURY
     Dosage: 60 TABS TWICE A DAY PO
     Route: 048
     Dates: start: 20081015, end: 20090301
  2. LAMOTRIGINE [Suspect]
     Indication: CONVULSION
     Dosage: 60 TABS TWICE A DAY PO
     Route: 048
     Dates: start: 20081015, end: 20090301

REACTIONS (6)
  - COGNITIVE DISORDER [None]
  - LEARNING DISORDER [None]
  - MEMORY IMPAIRMENT [None]
  - MENTAL IMPAIRMENT [None]
  - PARTIAL SEIZURES [None]
  - PRODUCT SUBSTITUTION ISSUE [None]
